FAERS Safety Report 13888792 (Version 2)
Quarter: 2017Q4

REPORT INFORMATION
  Report Type: Report from Study
  Country: AU (occurrence: AU)
  Receive Date: 20170821
  Receipt Date: 20171114
  Transmission Date: 20180320
  Serious: Yes (Hospitalization, Other)
  Sender: FDA-Public Use
  Company Number: AU-TOLMAR, INC.-2017AU010746

PATIENT
  Sex: Male

DRUGS (1)
  1. ELIGARD [Suspect]
     Active Substance: LEUPROLIDE ACETATE
     Indication: PROSTATE CANCER
     Dosage: 22.5 MG, Q3MONTHS
     Route: 065
     Dates: start: 20160511

REACTIONS (5)
  - Synovial cyst [Recovering/Resolving]
  - Skin cancer [Unknown]
  - Jaundice [Unknown]
  - Hot flush [Recovering/Resolving]
  - Urinary bladder polyp [Unknown]

NARRATIVE: CASE EVENT DATE: 2017
